FAERS Safety Report 15542920 (Version 3)
Quarter: 2019Q1

REPORT INFORMATION
  Report Type: Report from Study
  Country: AT (occurrence: AT)
  Receive Date: 20181023
  Receipt Date: 20190114
  Transmission Date: 20190417
  Serious: Yes (Hospitalization)
  Sender: FDA-Public Use
  Company Number: AT-ACTELION-A-CH2018-180441

PATIENT
  Age: 69 Year
  Sex: Female

DRUGS (7)
  1. UPTRAVI [Suspect]
     Active Substance: SELEXIPAG
     Indication: PULMONARY ARTERIAL HYPERTENSION
     Dosage: 600 MCG, BID
     Route: 048
     Dates: start: 20181008
  2. ATORVASTATIN [Concomitant]
     Active Substance: ATORVASTATIN
  3. ADCIRCA [Concomitant]
     Active Substance: TADALAFIL
  4. SPIRONO [Concomitant]
  5. OPSUMIT [Concomitant]
     Active Substance: MACITENTAN
  6. CLOPIDOGREL [Concomitant]
     Active Substance: CLOPIDOGREL BISULFATE
  7. THROMBO ASS [Concomitant]
     Active Substance: ASPIRIN

REACTIONS (3)
  - Pulmonary oedema [Unknown]
  - Oedema peripheral [Unknown]
  - Cardiac dysfunction [Unknown]

NARRATIVE: CASE EVENT DATE: 20181016
